FAERS Safety Report 12501036 (Version 2)
Quarter: 2016Q3

REPORT INFORMATION
  Report Type: Report from Study
  Country: PH (occurrence: PH)
  Receive Date: 20160627
  Receipt Date: 20160721
  Transmission Date: 20161109
  Serious: Yes (Hospitalization, Other)
  Sender: FDA-Public Use
  Company Number: PHHY2016PH083161

PATIENT
  Age: 48 Year
  Sex: Male

DRUGS (3)
  1. TASIGNA [Suspect]
     Active Substance: NILOTINIB
     Indication: CHRONIC MYELOID LEUKAEMIA
     Dosage: 800 MG, QD
     Route: 048
     Dates: start: 20160418, end: 20160424
  2. HYDROXYUREA. [Concomitant]
     Active Substance: HYDROXYUREA
     Indication: CHRONIC MYELOID LEUKAEMIA
     Dosage: UNK
     Route: 048
     Dates: start: 201606, end: 201606
  3. TASIGNA [Suspect]
     Active Substance: NILOTINIB
     Dosage: 800 MG, QD
     Route: 048
     Dates: start: 201605, end: 201605

REACTIONS (10)
  - Disseminated intravascular coagulation [Unknown]
  - Inflammation [Unknown]
  - Chloroma [Unknown]
  - Spinal cord neoplasm [Unknown]
  - Decubitus ulcer [Unknown]
  - Full blood count decreased [Not Recovered/Not Resolved]
  - Thrombocytopenia [Unknown]
  - Incorrect dosage administered [Recovering/Resolving]
  - White blood cell count decreased [Unknown]
  - Infection [Unknown]

NARRATIVE: CASE EVENT DATE: 20160418
